FAERS Safety Report 5699809-6 (Version None)
Quarter: 2008Q2

REPORT INFORMATION
  Report Type: 
  Country: None (occurrence: None)
  Receive Date: 20080410
  Receipt Date: 20080402
  Transmission Date: 20081010
  Serious: Yes (Other)
  Sender: FDA-Public Use
  Company Number: DE-NOVOPROD-273648

PATIENT
  Sex: Male

DRUGS (1)
  1. ACTRAPID NOVOLET [Suspect]
     Indication: DIABETES MELLITUS

REACTIONS (3)
  - DEVICE FAILURE [None]
  - FALL [None]
  - MEDICAL DEVICE COMPLICATION [None]
